FAERS Safety Report 5757807-8 (Version None)
Quarter: 2008Q2

REPORT INFORMATION
  Report Type: 
  Country: None (occurrence: None)
  Receive Date: 20080529
  Receipt Date: 20080514
  Transmission Date: 20081010
  Serious: Yes (Other)
  Sender: FDA-Public Use
  Company Number: 2008S1008223

PATIENT
  Age: 84 Year
  Sex: Male

DRUGS (4)
  1. MOXONIDINE (MOXONIDINE) [Suspect]
     Indication: DRUG USE FOR UNKNOWN INDICATION
     Dosage: ; ONCE; ORAL
     Route: 048
     Dates: start: 20080509, end: 20080509
  2. AMLODIPINE [Suspect]
     Indication: INTENTIONAL OVERDOSE
     Dosage: ; ORAL
     Route: 048
     Dates: start: 20080509, end: 20080509
  3. LISINOPRIL [Suspect]
     Indication: INTENTIONAL OVERDOSE
     Dosage: ; ORAL
     Route: 048
     Dates: start: 20080509, end: 20080509
  4. VENLAFAXINE HCL [Suspect]
     Indication: INTENTIONAL OVERDOSE
     Dosage: ; ORAL
     Route: 048
     Dates: start: 20080509, end: 20080509

REACTIONS (3)
  - HYPOTENSION [None]
  - INTENTIONAL OVERDOSE [None]
  - SOMNOLENCE [None]
